FAERS Safety Report 8073020-6 (Version None)
Quarter: 2012Q1

REPORT INFORMATION
  Report Type: 
  Country: None (occurrence: None)
  Receive Date: 20120126
  Receipt Date: 20120119
  Transmission Date: 20120608
  Serious: Yes (Hospitalization)
  Sender: FDA-Public Use
  Company Number: IT-ASTRAZENECA-2011SE77261

PATIENT
  Age: 30529 Day
  Sex: Male

DRUGS (2)
  1. LEVOFLOXACIN [Suspect]
     Indication: RESPIRATORY TRACT INFECTION
     Route: 041
     Dates: start: 20111023, end: 20111028
  2. MERREM [Suspect]
     Indication: RESPIRATORY TRACT INFECTION
     Route: 041
     Dates: start: 20111023, end: 20111028

REACTIONS (1)
  - RENAL FAILURE ACUTE [None]
